FAERS Safety Report 8836773 (Version 1)
Quarter: 2012Q4

REPORT INFORMATION
  Report Type: Spontaneous
  Country: US (occurrence: None)
  Receive Date: 20121011
  Receipt Date: 20121011
  Transmission Date: 20130627
  Serious: No
  Sender: FDA-Public Use
  Company Number: None

PATIENT
  Age: 58 Year
  Sex: Male
  Weight: 104.2 kg

DRUGS (1)
  1. ASPIRIN [Suspect]
     Route: 048
     Dates: start: 20090814, end: 20121006

REACTIONS (1)
  - Gastric haemorrhage [None]
